FAERS Safety Report 9650093 (Version 1)
Quarter: 2013Q4

REPORT INFORMATION
  Report Type: Spontaneous
  Country: US (occurrence: US)
  Receive Date: 20131028
  Receipt Date: 20131028
  Transmission Date: 20140711
  Serious: No
  Sender: FDA-Public Use
  Company Number: US-PURDUE-USA-2012-0096913

PATIENT
  Sex: Female

DRUGS (2)
  1. OXYCONTIN (NDA 22-272) [Suspect]
     Indication: PAIN
     Dosage: 40 MG, Q12H
     Route: 048
  2. OXYCODONE                          /00045603/ [Concomitant]
     Indication: BREAKTHROUGH PAIN
     Dosage: 15 MG, QID
     Route: 048

REACTIONS (2)
  - Pain [Not Recovered/Not Resolved]
  - Drug withdrawal syndrome [Not Recovered/Not Resolved]
